FAERS Safety Report 13937088 (Version 2)
Quarter: 2018Q1

REPORT INFORMATION
  Report Type: Spontaneous
  Country: US (occurrence: US)
  Receive Date: 20170905
  Receipt Date: 20180213
  Transmission Date: 20180508
  Serious: Yes (Other)
  Sender: FDA-Public Use
  Company Number: US-SA-2017SA163986

PATIENT
  Age: 71 Year
  Sex: Male

DRUGS (2)
  1. ALIROCUMAB PREFILLED PEN [Suspect]
     Active Substance: ALIROCUMAB
     Dates: start: 201604
  2. PRALUENT [Suspect]
     Active Substance: ALIROCUMAB
     Route: 058
     Dates: start: 201604

REACTIONS (1)
  - Bladder cancer [Unknown]
